FAERS Safety Report 7335994-8 (Version None)
Quarter: 2011Q1

REPORT INFORMATION
  Report Type: 
  Country: None (occurrence: None)
  Receive Date: 20110307
  Receipt Date: 20110224
  Transmission Date: 20110831
  Serious: Yes (Hospitalization, Other)
  Sender: FDA-Public Use
  Company Number: PHHO2011RO03571

PATIENT
  Sex: Female
  Weight: 63 kg

DRUGS (3)
  1. FTY 720 [Suspect]
     Dosage: 0.5 MG, QD
     Route: 048
     Dates: start: 20110224
  2. FTY 720 [Suspect]
     Indication: MULTIPLE SCLEROSIS
     Dosage: CODE NOT BROKEN
     Route: 048
  3. FTY 720 [Suspect]
     Dosage: 0.5 MG, QD
     Route: 048
     Dates: start: 20090702, end: 20110222

REACTIONS (3)
  - CHOLECYSTECTOMY [None]
  - CHOLECYSTITIS [None]
  - BILIARY COLIC [None]
